FAERS Safety Report 7678254-8 (Version None)
Quarter: 2011Q3

REPORT INFORMATION
  Report Type: 
  Country: None (occurrence: None)
  Receive Date: 20110811
  Receipt Date: 20110801
  Transmission Date: 20111222
  Serious: Yes (Hospitalization)
  Sender: FDA-Public Use
  Company Number: US-JNJFOC-20110304618

PATIENT

DRUGS (3)
  1. REMICADE [Suspect]
     Indication: CROHN'S DISEASE
     Route: 042
     Dates: start: 20070227
  2. REMICADE [Suspect]
     Route: 042
     Dates: start: 20050512
  3. REMICADE [Suspect]
     Route: 042
     Dates: start: 20070401

REACTIONS (4)
  - DIARRHOEA [None]
  - ABDOMINAL PAIN [None]
  - HAEMORRHAGE [None]
  - WEIGHT DECREASED [None]
